FAERS Safety Report 23594155 (Version 1)
Quarter: 2024Q1

REPORT INFORMATION
  Report Type: Spontaneous
  Country: CZ (occurrence: CZ)
  Receive Date: 20240305
  Receipt Date: 20240305
  Transmission Date: 20240410
  Serious: Yes (Other)
  Sender: FDA-Public Use
  Company Number: CZ-SANDOZ-SDZ2024CZ022435

PATIENT
  Age: 61 Year
  Sex: Male

DRUGS (4)
  1. VORICONAZOLE [Suspect]
     Active Substance: VORICONAZOLE
     Dosage: 200 MG EVERY 12 HOURS ADMINISTERED ORALLY
     Route: 048
     Dates: start: 202204, end: 202205
  2. VORICONAZOLE [Suspect]
     Active Substance: VORICONAZOLE
     Indication: Meningitis aspergillus
     Dosage: 200 MG EVERY 12 HOURS ADMINISTERED ORALLY
     Route: 048
     Dates: start: 202205
  3. VORICONAZOLE [Suspect]
     Active Substance: VORICONAZOLE
     Dosage: 16 DAYS OF INTRAVENOUS VORICONAZOLE THERAPY
     Route: 042
     Dates: start: 202204
  4. MEROPENEM [Concomitant]
     Active Substance: MEROPENEM
     Indication: Antibiotic therapy
     Dosage: UNK
     Route: 065
     Dates: start: 202204

REACTIONS (4)
  - Dermatitis bullous [Unknown]
  - Pyrexia [Not Recovered/Not Resolved]
  - Drug intolerance [Unknown]
  - Photosensitivity reaction [Unknown]

NARRATIVE: CASE EVENT DATE: 20220101
